FAERS Safety Report 5247814-6 (Version None)
Quarter: 2007Q1

REPORT INFORMATION
  Report Type: 
  Country: None (occurrence: None)
  Receive Date: 20070227
  Receipt Date: 20070227
  Transmission Date: 20070707
  Serious: No
  Sender: FDA-Public Use
  Company Number: None

PATIENT
  Age: 9 Year
  Sex: Female
  Weight: 26.7622 kg

DRUGS (3)
  1. DAYTRANA [Suspect]
     Indication: ATTENTION DEFICIT/HYPERACTIVITY DISORDER
     Dosage: 10 MG DAILY TRANSDERM
     Route: 062
     Dates: start: 20061201, end: 20061219
  2. DDAVP (NEEDS NO REFRIGERATION) [Concomitant]
  3. MELATONIN [Concomitant]

REACTIONS (4)
  - LACERATION [None]
  - SCRATCH [None]
  - SELF MUTILATION [None]
  - SUICIDAL IDEATION [None]
